FAERS Safety Report 4638504-9 (Version None)
Quarter: 2005Q2

REPORT INFORMATION
  Report Type: 
  Country: None (occurrence: None)
  Receive Date: 20050418
  Receipt Date: 20050408
  Transmission Date: 20051028
  Serious: Yes (Other)
  Sender: FDA-Public Use
  Company Number: 2005-04-0376

PATIENT
  Sex: Male

DRUGS (2)
  1. TEMODAL [Suspect]
     Dosage: ORAL
     Route: 048
  2. RADIATION THERAPY  NO DOSE FORM [Suspect]
     Dosage: X-RAY THERAPY

REACTIONS (1)
  - STEVENS-JOHNSON SYNDROME [None]
